FAERS Safety Report 8692582 (Version 4)
Quarter: 2013Q1

REPORT INFORMATION
  Report Type: Report from Study
  Country: FR (occurrence: FR)
  Receive Date: 20120730
  Receipt Date: 20130219
  Transmission Date: 20140127
  Serious: Yes (Death, Life-Threatening, Hospitalization)
  Sender: FDA-Public Use
  Company Number: FR-PFIZER INC-2012102083

PATIENT
  Age: 15 Year
  Sex: Female
  Weight: 54 kg

DRUGS (10)
  1. ATGAM [Suspect]
     Indication: BONE MARROW FAILURE
     Dosage: 40 MG/KG PER DAY
     Route: 042
     Dates: start: 20120423, end: 20120427
  2. NEORAL [Suspect]
     Indication: BONE MARROW FAILURE
     Dosage: 100 MG, 2X/DAY
     Route: 048
     Dates: start: 20120423, end: 20120531
  3. SOLU-MEDROL [Concomitant]
     Indication: PREMEDICATION
     Dosage: 30 MG, 2X/DAY
     Route: 042
     Dates: start: 20120428
  4. POLARAMINE [Concomitant]
     Indication: PREMEDICATION
     Dosage: 5 MG, 1X/DAY
     Route: 042
     Dates: start: 20120423, end: 20120423
  5. BACTRIM [Concomitant]
     Indication: PROPHYLAXIS
     Dosage: 800 MG, 3 TIMES A WEEK
     Route: 048
     Dates: start: 20120428
  6. FUNGIZONE [Concomitant]
     Indication: PROPHYLAXIS
     Dosage: UNK
     Route: 048
  7. MOPRAL [Concomitant]
     Dosage: 20 MG, 1X/DAY
     Route: 048
     Dates: start: 20120423
  8. TRIFLUCAN [Concomitant]
     Dosage: 400 MG, 1X/DAY
     Route: 048
  9. CYCLOSPORINE [Concomitant]
     Indication: BONE MARROW FAILURE
     Dosage: 15 MG/KG, UNK
  10. ZOPHREN [Concomitant]
     Dosage: 8 MG, 2X/DAY
     Dates: start: 20120428

REACTIONS (11)
  - Bronchopulmonary aspergillosis [Fatal]
  - No therapeutic response [Not Recovered/Not Resolved]
  - Pulmonary haemorrhage [Recovered/Resolved]
  - Anaphylactic shock [Recovered/Resolved]
  - Hypotension [Recovering/Resolving]
  - Haemodynamic instability [Recovering/Resolving]
  - Haemoptysis [Recovering/Resolving]
  - Tachypnoea [Recovering/Resolving]
  - Dyspnoea [Recovered/Resolved]
  - Urticaria [Recovered/Resolved]
  - Chest pain [Recovering/Resolving]
